FAERS Safety Report 10238088 (Version 1)
Quarter: 2014Q2

REPORT INFORMATION
  Report Type: Spontaneous
  Country: JP (occurrence: JP)
  Receive Date: 20140616
  Receipt Date: 20140616
  Transmission Date: 20141212
  Serious: Yes (Other)
  Sender: FDA-Public Use
  Company Number: JP-009507513-1406JPN006048

PATIENT
  Sex: 0

DRUGS (1)
  1. TRYPTANOL [Suspect]
     Dosage: UNK
     Route: 048
     Dates: end: 201405

REACTIONS (1)
  - Mechanical ileus [Unknown]
